FAERS Safety Report 17663671 (Version 1)
Quarter: 2020Q2

REPORT INFORMATION
  Report Type: Spontaneous
  Country: IT (occurrence: IT)
  Receive Date: 20200414
  Receipt Date: 20200414
  Transmission Date: 20200713
  Serious: Yes (Other)
  Sender: FDA-Public Use
  Company Number: IT-SUN PHARMACEUTICAL INDUSTRIES LTD-2020RR-243684

PATIENT
  Age: 59 Year
  Sex: Male

DRUGS (7)
  1. ISAVUCONAZOLE [Suspect]
     Active Substance: ISAVUCONAZOLE
     Indication: FUNGAL INFECTION
     Dosage: 200 MILLIGRAM, DAILY
     Route: 042
  2. AMPHOTERICIN B. [Suspect]
     Active Substance: AMPHOTERICIN B
     Indication: ANTIFUNGAL TREATMENT
     Route: 065
  3. METHOTREXATE. [Suspect]
     Active Substance: METHOTREXATE
     Dosage: 20 MILLIGRAMS, DAYS +3 AND +6
     Route: 065
  4. AMPHOTERICIN B. [Suspect]
     Active Substance: AMPHOTERICIN B
     Dosage: 7.5 MILLIGRAM/KILOGRAM, DAILY
     Route: 065
  5. PREDNISONE. [Suspect]
     Active Substance: PREDNISONE
     Indication: GRAFT VERSUS HOST DISEASE
     Dosage: 1 MILLIGRAM, DAILY
     Route: 065
  6. METHOTREXATE. [Suspect]
     Active Substance: METHOTREXATE
     Indication: PROPHYLAXIS
     Dosage: 30 MILLIGRAMS, DAY +1
     Route: 065
  7. PIPERACILLIN/TAZOBACTAM [Concomitant]
     Active Substance: PIPERACILLIN SODIUM\TAZOBACTAM SODIUM
     Indication: FUNGAL INFECTION
     Route: 065

REACTIONS (4)
  - Paralysis [Unknown]
  - Drug ineffective [Unknown]
  - Diplopia [Unknown]
  - Condition aggravated [Recovered/Resolved]
